FAERS Safety Report 5331053-4 (Version None)
Quarter: 2007Q2

REPORT INFORMATION
  Report Type: 
  Country: None (occurrence: None)
  Receive Date: 20070522
  Receipt Date: 20070511
  Transmission Date: 20071010
  Serious: Yes (Hospitalization)
  Sender: FDA-Public Use
  Company Number: B0456230A

PATIENT
  Age: 71 Year
  Sex: Male
  Weight: 88 kg

DRUGS (1)
  1. DUTASTERIDE [Suspect]
     Indication: BENIGN PROSTATIC HYPERPLASIA
     Dosage: .5MG PER DAY
     Route: 048
     Dates: start: 20041028, end: 20061225

REACTIONS (5)
  - BENIGN PROSTATIC HYPERPLASIA [None]
  - CYSTITIS [None]
  - PAIN [None]
  - PYREXIA [None]
  - URINARY RETENTION [None]
